FAERS Safety Report 15868015 (Version 3)
Quarter: 2019Q2

REPORT INFORMATION
  Report Type: Spontaneous
  Country: JP (occurrence: JP)
  Receive Date: 20190125
  Receipt Date: 20190404
  Transmission Date: 20190711
  Serious: Yes (Life-Threatening)
  Sender: FDA-Public Use
  Company Number: JP-009507513-1901JPN009482

PATIENT
  Age: 78 Year
  Sex: Female

DRUGS (10)
  1. METFORMIN HYDROCHLORIDE. [Concomitant]
     Active Substance: METFORMIN HYDROCHLORIDE
     Indication: DIABETES MELLITUS
     Dosage: DOSE:1000 MILLIGRAM
     Route: 048
  2. LINAGLIPTIN [Concomitant]
     Active Substance: LINAGLIPTIN
     Indication: DIABETES MELLITUS
     Dosage: 5 MILLIGRAM
     Route: 048
  3. LINACLOTIDE [Concomitant]
     Active Substance: LINACLOTIDE
     Indication: PAIN
     Dosage: 0.25 MILLIGRAM
     Route: 048
     Dates: start: 20190110
  4. DIAZEPAM. [Concomitant]
     Active Substance: DIAZEPAM
     Indication: DEPRESSION
     Dosage: 5 MILLIGRAM
     Route: 048
     Dates: start: 20190111, end: 20190117
  5. TRAZODONE HYDROCHLORIDE. [Concomitant]
     Active Substance: TRAZODONE HYDROCHLORIDE
     Indication: DEPRESSION
     Dosage: 25 MILLIGRAM
     Route: 048
     Dates: start: 20190109, end: 20190110
  6. AZILSARTAN [Concomitant]
     Active Substance: AZILSARTAN KAMEDOXOMIL
     Indication: HYPERTENSION
     Dosage: 20 MILLIGRAM
     Route: 048
     Dates: start: 20181228, end: 20190115
  7. ASPIRIN (+) LANSOPRAZOLE [Concomitant]
     Indication: MYOCARDIAL ISCHAEMIA
     Dosage: UNK
     Route: 048
     Dates: start: 20190110
  8. REFLEX [Suspect]
     Active Substance: MIRTAZAPINE
     Indication: DEPRESSION
     Dosage: 7.5 MILLIGRAM/DAY
     Route: 048
     Dates: start: 20190111, end: 20190118
  9. TRAMCET [Suspect]
     Active Substance: ACETAMINOPHEN\TRAMADOL
     Indication: PAIN
     Dosage: UNK
     Route: 048
     Dates: start: 20181221
  10. CARBIDOPA (+) LEVODOPA [Concomitant]
     Active Substance: CARBIDOPA\LEVODOPA
     Indication: PARKINSON^S DISEASE
     Dosage: UNK
     Route: 048
     Dates: start: 20190108

REACTIONS (1)
  - Urinary retention [Recovered/Resolved]

NARRATIVE: CASE EVENT DATE: 20190115
